FAERS Safety Report 9932478 (Version 1)
Quarter: 2014Q1

REPORT INFORMATION
  Report Type: Spontaneous
  Country: US (occurrence: None)
  Receive Date: 20140227
  Receipt Date: 20140227
  Transmission Date: 20141002
  Serious: Yes (Other)
  Sender: FDA-Public Use
  Company Number: None

PATIENT
  Age: 59 Year
  Sex: Female
  Weight: 63 kg

DRUGS (2)
  1. DIAZEPAM 10 MG [Suspect]
     Indication: IRRITABLE BOWEL SYNDROME
     Dosage: 10 MG, TID PRN, PO
     Route: 048
     Dates: start: 201311
  2. DICYCLOMINE [Concomitant]

REACTIONS (2)
  - Feeling abnormal [None]
  - Anxiety [None]
